FAERS Safety Report 21531273 (Version 1)
Quarter: 2022Q4

REPORT INFORMATION
  Report Type: Spontaneous
  Country: US (occurrence: None)
  Receive Date: 20221029
  Receipt Date: 20221029
  Transmission Date: 20230113
  Serious: Yes (Disabling)
  Sender: FDA-Public Use
  Company Number: None

PATIENT
  Age: 20 Year
  Sex: Male
  Weight: 80 kg

DRUGS (1)
  1. BROMANTANE [Suspect]
     Active Substance: BROMANTANE
     Indication: Attention deficit hyperactivity disorder

REACTIONS (7)
  - Swelling [None]
  - Burning sensation [None]
  - Hypersensitivity [None]
  - Paranasal sinus inflammation [None]
  - Mucosal disorder [None]
  - Injury [None]
  - Product use in unapproved indication [None]

NARRATIVE: CASE EVENT DATE: 20220713
